FAERS Safety Report 25688733 (Version 2)
Quarter: 2025Q3

REPORT INFORMATION
  Report Type: Spontaneous
  Country: US (occurrence: US)
  Receive Date: 20250818
  Receipt Date: 20250908
  Transmission Date: 20251020
  Serious: No
  Sender: CALLIDITAS THERAPEUTICS AB
  Company Number: US-Calliditas-2025CAL02355

PATIENT
  Age: 35 Year
  Sex: Female

DRUGS (9)
  1. TARPEYO [Suspect]
     Active Substance: BUDESONIDE
     Indication: IgA nephropathy
     Route: 048
     Dates: start: 20250427
  2. CALCITRIOL [Concomitant]
     Active Substance: CALCITRIOL
  3. CRESTOR [Concomitant]
     Active Substance: ROSUVASTATIN CALCIUM
  4. JARDIANCE [Concomitant]
     Active Substance: EMPAGLIFLOZIN
  5. LIDOCAINE [Concomitant]
     Active Substance: LIDOCAINE
  6. LISINOPRIL [Concomitant]
     Active Substance: LISINOPRIL
  7. LOSARTAN [Concomitant]
     Active Substance: LOSARTAN
  8. NORVASC [Concomitant]
     Active Substance: AMLODIPINE BESYLATE
  9. TORSEMIDE [Concomitant]
     Active Substance: TORSEMIDE

REACTIONS (2)
  - COVID-19 [Recovered/Resolved]
  - Product dose omission issue [Recovered/Resolved]

NARRATIVE: CASE EVENT DATE: 20250729
